FAERS Safety Report 6316055-3 (Version None)
Quarter: 2009Q3

REPORT INFORMATION
  Report Type: 
  Country: None (occurrence: None)
  Receive Date: 20090820
  Receipt Date: 20090811
  Transmission Date: 20100115
  Serious: Yes (Other)
  Sender: FDA-Public Use
  Company Number: DE-ASTRAZENECA-2009SE07418

PATIENT
  Age: 85 Year
  Sex: Female

DRUGS (6)
  1. QUETIAPINE [Suspect]
  2. VALPROIC ACID [Interacting]
  3. ASPIRIN [Concomitant]
     Indication: PROPHYLAXIS
  4. NIFEDIPINE [Concomitant]
  5. TORSEMIDE [Concomitant]
  6. LEVOTHYROXINE [Concomitant]

REACTIONS (2)
  - DRUG INTERACTION [None]
  - MYOPATHY [None]
